FAERS Safety Report 14040905 (Version 1)
Quarter: 2017Q4

REPORT INFORMATION
  Report Type: Spontaneous
  Country: US (occurrence: US)
  Receive Date: 20171004
  Receipt Date: 20171004
  Transmission Date: 20180321
  Serious: No
  Sender: FDA-Public Use
  Company Number: US-AMGEN-USASP2017107623

PATIENT
  Age: 62 Year
  Sex: Female

DRUGS (4)
  1. PROLIA [Suspect]
     Active Substance: DENOSUMAB
     Indication: OSTEOPOROSIS POSTMENOPAUSAL
     Dosage: UNK
     Route: 058
     Dates: start: 20161215
  2. PREDNISONE. [Concomitant]
     Active Substance: PREDNISONE
     Dosage: 6 MG, UNK
  3. ADVIL [Concomitant]
     Active Substance: IBUPROFEN
     Indication: PAIN
  4. ORENCIA [Concomitant]
     Active Substance: ABATACEPT
     Indication: RHEUMATOID ARTHRITIS

REACTIONS (8)
  - Cough [Unknown]
  - Asthenia [Not Recovered/Not Resolved]
  - Pain [Unknown]
  - Myalgia [Not Recovered/Not Resolved]
  - Fatigue [Unknown]
  - Gait disturbance [Not Recovered/Not Resolved]
  - Pyrexia [Not Recovered/Not Resolved]
  - Respiratory tract congestion [Unknown]

NARRATIVE: CASE EVENT DATE: 2017
